FAERS Safety Report 6285298-X (Version None)
Quarter: 2009Q3

REPORT INFORMATION
  Report Type: 
  Country: None (occurrence: None)
  Receive Date: 20090723
  Receipt Date: 20090717
  Transmission Date: 20100115
  Serious: Yes (Hospitalization, Other)
  Sender: FDA-Public Use
  Company Number: GXKR2009DE08050

PATIENT
  Age: 64 Year
  Sex: Female

DRUGS (2)
  1. METRONIDAZOLE [Suspect]
     Indication: PERIODONTITIS
     Dosage: 400 MG, TID, ORAL; 0.5 DF, BID, ORAL
     Route: 048
  2. DIOVAN HCT [Concomitant]

REACTIONS (5)
  - ASTHENIA [None]
  - CHILLS [None]
  - FEELING COLD [None]
  - MICTURITION URGENCY [None]
  - PALPITATIONS [None]
